FAERS Safety Report 9373598 (Version 1)
Quarter: 2013Q2

REPORT INFORMATION
  Report Type: Report from Study
  Country: AU (occurrence: AU)
  Receive Date: 20130627
  Receipt Date: 20130627
  Transmission Date: 20140414
  Serious: Yes (Other)
  Sender: FDA-Public Use
  Company Number: PHHY2012AU128750

PATIENT
  Sex: Female

DRUGS (1)
  1. EXJADE [Suspect]
     Indication: MYELODYSPLASTIC SYNDROME
     Dosage: UNK UKN, UNK
     Route: 048
     Dates: start: 20111101

REACTIONS (5)
  - Diabetes mellitus [Unknown]
  - Neoplasm malignant [Unknown]
  - Malaise [Unknown]
  - Asthenia [Unknown]
  - Full blood count decreased [Unknown]
